FAERS Safety Report 13909584 (Version 9)
Quarter: 2024Q3

REPORT INFORMATION
  Report Type: Spontaneous
  Country: US (occurrence: US)
  Receive Date: 20170828
  Receipt Date: 20240701
  Transmission Date: 20241017
  Serious: No
  Sender: PFIZER
  Company Number: US-PFIZER INC-2017363494

PATIENT
  Age: 57 Year
  Sex: Female
  Weight: 52.16 kg

DRUGS (4)
  1. DEPO-ESTRADIOL [Suspect]
     Active Substance: ESTRADIOL CYPIONATE
     Indication: Hysterectomy
     Dosage: UNK (1-CC EVERY 3 WEEKS)
     Route: 030
     Dates: start: 1990
  2. DEPO-ESTRADIOL [Suspect]
     Active Substance: ESTRADIOL CYPIONATE
     Indication: Menopause
     Dosage: UNK (1-CC EVERY 3 WEEKS)
     Route: 030
     Dates: start: 20110729
  3. DEPO-ESTRADIOL [Suspect]
     Active Substance: ESTRADIOL CYPIONATE
     Indication: Hormone therapy
  4. ADVIL [Concomitant]
     Active Substance: IBUPROFEN\IBUPROFEN SODIUM
     Dosage: UNK

REACTIONS (7)
  - Drug withdrawal syndrome [Recovered/Resolved]
  - Cold sweat [Recovered/Resolved]
  - Night sweats [Unknown]
  - Abnormal dreams [Unknown]
  - Feeling abnormal [Unknown]
  - Pain [Unknown]
  - Intentional product misuse [Unknown]

NARRATIVE: CASE EVENT DATE: 20171128
